FAERS Safety Report 7528350-0 (Version None)
Quarter: 2011Q2

REPORT INFORMATION
  Report Type: 
  Country: None (occurrence: None)
  Receive Date: 20110607
  Receipt Date: 20110223
  Transmission Date: 20111010
  Serious: No
  Sender: FDA-Public Use
  Company Number: US-ASTRAZENECA-2011SE14802

PATIENT
  Sex: Male

DRUGS (1)
  1. PRILOSEC OTC [Suspect]
     Indication: DYSPEPSIA
     Dosage: ONE DOSAGE FORM DAILY, ONE TABLET DAILY FOR ELEVEN DAYS
     Route: 048
     Dates: start: 20110211, end: 20110221

REACTIONS (3)
  - PAINFUL RESPIRATION [None]
  - OROPHARYNGEAL PAIN [None]
  - DYSPHAGIA [None]
